FAERS Safety Report 4543808-4 (Version None)
Quarter: 2005Q1

REPORT INFORMATION
  Report Type: 
  Country: None (occurrence: None)
  Receive Date: 20050103
  Receipt Date: 20041214
  Transmission Date: 20050727
  Serious: Yes (Hospitalization)
  Sender: FDA-Public Use
  Company Number: GXKR2004US00593

PATIENT
  Age: 56 Year
  Sex: Male

DRUGS (4)
  1. METOPROLOL TARTRATE [Suspect]
     Indication: HYPERTENSION
     Dosage: 75 MG, BID
  2. BUPROPION (NGX) BUPROPION) [Suspect]
     Indication: SMOKING CESSATION THERAPY
     Dosage: 150 MG, BID
  3. DILTIAZEM [Concomitant]
  4. .. [Concomitant]

REACTIONS (9)
  - CARDIAC FAILURE CONGESTIVE [None]
  - DRUG INTERACTION [None]
  - FATIGUE [None]
  - HYPOTENSION [None]
  - METABOLIC DISORDER [None]
  - PULMONARY HILUM MASS [None]
  - PULMONARY VASCULAR DISORDER [None]
  - RALES [None]
  - SINUS BRADYCARDIA [None]
